FAERS Safety Report 7600439-7 (Version None)
Quarter: 2011Q3

REPORT INFORMATION
  Report Type: 
  Country: None (occurrence: None)
  Receive Date: 20110711
  Receipt Date: 20110704
  Transmission Date: 20111222
  Serious: Yes (Other)
  Sender: FDA-Public Use
  Company Number: PHHY2011AR59424

PATIENT
  Sex: Female

DRUGS (5)
  1. STALEVO 100 [Suspect]
     Indication: PARKINSON'S DISEASE
     Dosage: 150 MG, 8 TIMES A DAY
     Dates: start: 20100820
  2. QUETIAPINE [Concomitant]
     Dosage: UNK UKN, UNK
  3. PRAMIPEXOLE DIHYDROCHLORIDE [Concomitant]
     Dosage: UNK UKN, UNK
  4. STALEVO 100 [Suspect]
     Dosage: 75 MG, 8 TIMES A DAY
  5. SERTRALINE HYDROCHLORIDE [Concomitant]
     Dosage: UNK UKN, UNK

REACTIONS (3)
  - TREMOR [None]
  - FALL [None]
  - HUMERUS FRACTURE [None]
